FAERS Safety Report 9751486 (Version 2)
Quarter: 2014Q4

REPORT INFORMATION
  Report Type: Spontaneous
  Country: US (occurrence: US)
  Receive Date: 20131212
  Receipt Date: 20141217
  Transmission Date: 20150529
  Serious: No
  Sender: FDA-Public Use
  Company Number: US-PURDUE-USA-2013-0107171

PATIENT
  Age: 80 Year
  Sex: Female
  Weight: 56.24 kg

DRUGS (1)
  1. DILAUDID [Suspect]
     Active Substance: HYDROMORPHONE HYDROCHLORIDE
     Indication: ARTHRALGIA
     Dosage: 2 MG, UNK
     Route: 048
     Dates: start: 20130122

REACTIONS (4)
  - Constipation [Unknown]
  - Irritable bowel syndrome [Not Recovered/Not Resolved]
  - Headache [Recovered/Resolved]
  - Defaecation urgency [Not Recovered/Not Resolved]

NARRATIVE: CASE EVENT DATE: 20130310
